FAERS Safety Report 23202623 (Version 1)
Quarter: 2023Q4

REPORT INFORMATION
  Report Type: Other
  Country: FR (occurrence: FR)
  Receive Date: 20231120
  Receipt Date: 20231120
  Transmission Date: 20240110
  Serious: Yes (Other)
  Sender: FDA-Public Use
  Company Number: None

PATIENT
  Weight: 1.89 kg

DRUGS (29)
  1. POTASSIUM CHLORIDE [Suspect]
     Active Substance: POTASSIUM CHLORIDE
     Indication: Product used for unknown indication
     Dosage: THE PATIENT^S MOTHER DOSE WAS DOSE OF 1200 MILLIGRAM, QD
     Route: 064
     Dates: start: 20170804
  2. GABAPENTIN [Suspect]
     Active Substance: GABAPENTIN
     Indication: Product used for unknown indication
     Dosage: THE PATIENT^S MOTHER DOSE WAS 400 MG, QD,
     Route: 064
     Dates: start: 20160930
  3. TRAMADOL HYDROCHLORIDE [Suspect]
     Active Substance: TRAMADOL HYDROCHLORIDE
     Indication: Product used for unknown indication
     Dosage: THE PATIENT^S MOTHER DOSE WAS 50 MILLIGRAM, QD
     Route: 064
     Dates: start: 20160930, end: 20170306
  4. AMOXICILLIN [Suspect]
     Active Substance: AMOXICILLIN
     Indication: Product used for unknown indication
     Dosage: THE PATIENT^S MOTHER DOSE WAS 3 GRAM, QD
     Route: 064
     Dates: start: 20170804, end: 20170811
  5. FUROSEMIDE [Suspect]
     Active Substance: FUROSEMIDE
     Indication: Product used for unknown indication
     Dosage: THE PATIENT^S MOTHER DOSE WAS 40 MILLIGRAM
     Route: 064
  6. METHYLDOPA [Suspect]
     Active Substance: METHYLDOPA
     Indication: Product used for unknown indication
     Dosage: THE PATIENT^S MOTHER DOSE WAS DOSE OF 15000 MILLIGRAM, QD
     Route: 064
     Dates: start: 20170720
  7. POLYETHYLENE GLYCOLS [Suspect]
     Active Substance: POLYETHYLENE GLYCOLS
     Indication: Product used for unknown indication
     Dosage: THE PATIENT^S MOTHER DOSE WAS 1 DOSAGE FORM, QD
     Route: 064
     Dates: start: 20160930, end: 20170405
  8. METFORMIN [Suspect]
     Active Substance: METFORMIN HYDROCHLORIDE
     Indication: Product used for unknown indication
     Dosage: THE PATIENT^S MOTHER DOSE WAS 1700 MILLIGRAM, QD
     Route: 064
     Dates: start: 20160930, end: 20170224
  9. METFORMIN [Suspect]
     Active Substance: METFORMIN HYDROCHLORIDE
     Dosage: THE PATIENT^S MOTHER DOSE WAS 850 MILLIGRAM, QD
     Route: 064
     Dates: start: 20170224
  10. GLICLAZIDE [Suspect]
     Active Substance: GLICLAZIDE
     Indication: Product used for unknown indication
     Dosage: THE PATIENT^S MOTHER DOSE WAS 120 MILLIGRAM, QD
     Route: 064
     Dates: start: 20160930, end: 20170224
  11. LABETALOL [Suspect]
     Active Substance: LABETALOL\LABETALOL HYDROCHLORIDE
     Indication: Product used for unknown indication
     Dosage: THE PATIENT^S MOTHER DOSE WAS 80 MG, QD
     Route: 064
     Dates: start: 20170516
  12. NICARDIPINE HYDROCHLORIDE [Suspect]
     Active Substance: NICARDIPINE HYDROCHLORIDE
     Indication: Product used for unknown indication
     Dosage: THE PATIENT^S MOTHER DOSE WAS 1 DOSAGE FORM STARTED ON 13 MAR 2017
     Route: 064
     Dates: start: 20170313
  13. LEVEMIR [Suspect]
     Active Substance: INSULIN DETEMIR
     Indication: Product used for unknown indication
     Dosage: THE PATIENT^S MOTHER DOSE WAS 10 INTERNATIONAL UNIT, QD
     Route: 064
     Dates: start: 20160930, end: 20170224
  14. CHLORPROMAZINE HYDROCHLORIDE [Suspect]
     Active Substance: CHLORPROMAZINE HYDROCHLORIDE
     Indication: Product used for unknown indication
     Dosage: THE PATIENT^S MOTHER DOSE WAS 25 MILLIGRAM, QD
     Route: 064
     Dates: start: 20170720
  15. INSULIN LISPRO [Suspect]
     Active Substance: INSULIN LISPRO
     Indication: Product used for unknown indication
     Dosage: THE PATIENT^S MOTHER DOSE WAS 21 UG/M2, QD
     Route: 064
     Dates: start: 20170224, end: 20170224
  16. ARIPIPRAZOLE [Suspect]
     Active Substance: ARIPIPRAZOLE
     Indication: Product used for unknown indication
     Dosage: THE PATIENT^S MOTHER DOSE WAS 10 MILLIGRAM, QD
     Route: 064
     Dates: start: 20160930, end: 20170224
  17. FERROUS SULFATE [Suspect]
     Active Substance: FERROUS SULFATE
     Indication: Product used for unknown indication
     Dosage: THE PATIENT^S MOTHER DOSE WAS 1 DOSAGE FORM, QD
     Route: 064
     Dates: start: 20170313
  18. LASIX [Suspect]
     Active Substance: FUROSEMIDE
     Indication: Product used for unknown indication
     Dosage: THE PATIENT^S MOTHER DOSE WAS 40 MILLIGRAM
     Route: 064
  19. NICOTINE [Suspect]
     Active Substance: NICOTINE
     Indication: Product used for unknown indication
     Dosage: THE PATIENT^S MOTHER DOSE WAS 7 MILLIGRAM, QD
     Route: 064
     Dates: start: 20170224, end: 20170516
  20. AMITRIPTYLINE HYDROCHLORIDE [Suspect]
     Active Substance: AMITRIPTYLINE HYDROCHLORIDE
     Indication: Product used for unknown indication
     Dosage: THE PATIENT^S MOTHER DOSE WAS 2 DOSAGE FORM, QD
     Route: 064
     Dates: start: 20160930
  21. RAMIPRIL [Suspect]
     Active Substance: RAMIPRIL
     Indication: Product used for unknown indication
     Dosage: THE PATIENT^S MOTHER DOSE WAS 2.5 MILLIGRAM, QD STARTED ON 30 SEP 2016 TILL 24 FEB 2017
     Route: 064
     Dates: start: 20160930, end: 20170224
  22. LEUCOVORIN [Suspect]
     Active Substance: LEUCOVORIN\LEUCOVORIN CALCIUM
     Indication: Product used for unknown indication
     Dosage: THE PATIENT^S MOTHER DOSE WAS DOSE OF 5 MILLIGRAM, QD
     Route: 064
     Dates: start: 20170224, end: 20170313
  23. LANTUS [Suspect]
     Active Substance: INSULIN GLARGINE
     Indication: Product used for unknown indication
     Dosage: THE PATIENT^S MOTHER DOSE WAS 20 MILLIGRAM, QD
     Route: 064
     Dates: start: 20170224
  24. NICARDIPINE [Suspect]
     Active Substance: NICARDIPINE
     Indication: Product used for unknown indication
     Dosage: THE PATIENT^S MOTHER DOSE WAS UNKNOWN
     Route: 064
  25. LEUCOVORIN CALCIUM [Suspect]
     Active Substance: LEUCOVORIN CALCIUM
     Indication: Product used for unknown indication
     Dosage: THE PATIENT^S MOTHER DOSE WAS UNKNOWN
     Route: 064
  26. NICARDIPINE HYDROCHLORIDE [Suspect]
     Active Substance: NICARDIPINE HYDROCHLORIDE
     Indication: Product used for unknown indication
     Dosage: THE PATIENT^S MOTHER DOSE WAS 50 MILLIGRAM
     Route: 064
  27. INSULIN NOS [Suspect]
     Active Substance: INSULIN NOS
     Indication: Product used for unknown indication
     Dosage: THE PATIENT^S MOTHER DOSE WAS UNKNOWN DOSE STARTED ON 30 DEC 2016 TILL 24 FEB 2017
     Route: 064
     Dates: start: 20161230, end: 20170224
  28. FOLIC ACID [Suspect]
     Active Substance: FOLIC ACID
     Indication: Product used for unknown indication
     Dosage: THE PATIENT^S MOTHER DOSE WAS DOSE OF 5 MILLIGRAM, QD
     Route: 064
     Dates: start: 20170313
  29. FOLIC ACID [Suspect]
     Active Substance: FOLIC ACID
     Dosage: THE PATIENT^S MOTHER DOSE WAS DOSE OF 5 MILLIGRAM, QD
     Route: 064
     Dates: start: 20170224

REACTIONS (5)
  - Neutropenia [Unknown]
  - Foetal disorder [Unknown]
  - Premature baby [Unknown]
  - Low birth weight baby [Unknown]
  - Foetal exposure during pregnancy [Unknown]

NARRATIVE: CASE EVENT DATE: 20170914
